FAERS Safety Report 4953803-9 (Version None)
Quarter: 2006Q1

REPORT INFORMATION
  Report Type: 
  Country: None (occurrence: None)
  Receive Date: 20060324
  Receipt Date: 20060324
  Transmission Date: 20060701
  Serious: Yes (Life-Threatening, Hospitalization)
  Sender: FDA-Public Use
  Company Number: None

PATIENT
  Age: 20 Year
  Sex: Female
  Weight: 44.2 kg

DRUGS (16)
  1. INFLIXIMAB NA CENTOCOR [Suspect]
     Indication: SARCOIDOSIS
     Dosage: 450 MG MONTHLY IV
     Route: 042
     Dates: start: 20030305, end: 20060104
  2. XOPONEX [Concomitant]
  3. ALBUTEROL [Concomitant]
  4. PULMICORT [Concomitant]
  5. NORVASC [Concomitant]
  6. ENALAPRIL MALEATE [Concomitant]
  7. PROTONIX [Concomitant]
  8. PREDNISONE [Interacting]
  9. LANTUS [Concomitant]
  10. NOVOLOG [Concomitant]
  11. ZOLOFT [Concomitant]
  12. FOLIC ACID [Concomitant]
  13. FUROSEMIDE [Concomitant]
  14. RENAGEL QAC [Concomitant]
  15. PHOSLO QAC [Concomitant]
  16. ARANESP [Concomitant]

REACTIONS (1)
  - RENAL CELL CARCINOMA STAGE UNSPECIFIED [None]
